FAERS Safety Report 19438951 (Version 1)
Quarter: 2021Q2

REPORT INFORMATION
  Report Type: Report from Study
  Country: NL (occurrence: NL)
  Receive Date: 20210619
  Receipt Date: 20210619
  Transmission Date: 20210717
  Serious: Yes (Hospitalization, Other)
  Sender: FDA-Public Use
  Company Number: NVSC2021NL133984

PATIENT
  Age: 61 Year
  Sex: Female

DRUGS (6)
  1. ROPINIROLE. [Concomitant]
     Active Substance: ROPINIROLE
     Indication: PRODUCT USED FOR UNKNOWN INDICATION
     Dosage: 0.25 MG, BID
     Route: 065
  2. PANTOPRAZOLE [Concomitant]
     Active Substance: PANTOPRAZOLE
     Indication: PRODUCT USED FOR UNKNOWN INDICATION
     Dosage: 1 DF, QD
     Route: 065
  3. SANDOSTATINE LAR [Suspect]
     Active Substance: OCTREOTIDE ACETATE
     Indication: HYPOGLYCAEMIA
     Dosage: 1 DF, Q4W
     Route: 030
  4. SANDOSTATINE LAR [Suspect]
     Active Substance: OCTREOTIDE ACETATE
  5. TRAZODONE [Concomitant]
     Active Substance: TRAZODONE HYDROCHLORIDE
     Indication: PRODUCT USED FOR UNKNOWN INDICATION
     Dosage: UNK UNK, QD (100 MG X 75 MG)
     Route: 065
  6. SANDOSTATINE LAR [Suspect]
     Active Substance: OCTREOTIDE ACETATE

REACTIONS (3)
  - Hypoglycaemia [Recovered/Resolved]
  - Product use in unapproved indication [Unknown]
  - Loss of consciousness [Unknown]

NARRATIVE: CASE EVENT DATE: 20210531
